FAERS Safety Report 7642130-7 (Version None)
Quarter: 2011Q3

REPORT INFORMATION
  Report Type: 
  Country: None (occurrence: None)
  Receive Date: 20110728
  Receipt Date: 20110713
  Transmission Date: 20111222
  Serious: Yes (Death, Life-Threatening, Hospitalization)
  Sender: FDA-Public Use
  Company Number: NO-PFIZER INC-2010138069

PATIENT
  Age: 59 Year
  Sex: Male

DRUGS (7)
  1. MIRTAZAPINE [Suspect]
     Dosage: 60 MG, 1X/DAY
     Route: 048
  2. NORTRIPTYLINE HCL [Suspect]
  3. CENTYL [Suspect]
     Dosage: UNK
     Route: 048
  4. ATENOLOL [Suspect]
     Dosage: UNK
  5. AMITRIPTYLINE [Suspect]
     Indication: DEPRESSION
     Dosage: 125 MG, 1X/DAY
  6. ALPRAZOLAM [Suspect]
     Dosage: 4 MG, 1X/DAY
  7. ISOSORBIDE MONONITRATE [Suspect]
     Dosage: UNK

REACTIONS (5)
  - NERVOUS SYSTEM DISORDER [None]
  - DISSEMINATED INTRAVASCULAR COAGULATION [None]
  - POISONING [None]
  - SEROTONIN SYNDROME [None]
  - MULTI-ORGAN FAILURE [None]
